FAERS Safety Report 14409578 (Version 1)
Quarter: 2018Q1

REPORT INFORMATION
  Report Type: Report from Study
  Country: NL (occurrence: NL)
  Receive Date: 20180119
  Receipt Date: 20180119
  Transmission Date: 20180509
  Serious: Yes (Hospitalization)
  Sender: FDA-Public Use
  Company Number: NL-ROCHE-2041212

PATIENT

DRUGS (5)
  1. OXALIPLATIN. [Suspect]
     Active Substance: OXALIPLATIN
     Indication: COLORECTAL CANCER
     Dosage: DATE OF MOST RECENT DOSE PRIOR TO EVENT 03/OCT/2016
     Route: 042
     Dates: start: 20160822
  2. IRINOTECAN [Suspect]
     Active Substance: IRINOTECAN
     Indication: COLORECTAL CANCER
     Dosage: DATE OF MOST RECENT DOSE PRIOR TO EVENT 03/OCT/2016
     Route: 042
     Dates: start: 20160822
  3. FLUOROURACIL. [Suspect]
     Active Substance: FLUOROURACIL
     Indication: COLORECTAL CANCER
     Dosage: DATE OF MOST RECENT DOSE PRIOR TO EVENT 05/OCT/2016
     Route: 042
     Dates: start: 20160822
  4. BEVACIZUMAB. [Suspect]
     Active Substance: BEVACIZUMAB
     Indication: COLORECTAL CANCER
     Dosage: DATE OF MOST RECENT DOSE PRIOR TO EVENT 03/OCT/2016
     Route: 042
     Dates: start: 20160822
  5. LEUCOVORIN. [Suspect]
     Active Substance: LEUCOVORIN
     Indication: COLORECTAL CANCER
     Dosage: DATE OF MOST RECENT DOSE PRIOR TO EVENT 03/OCT/2016
     Route: 042
     Dates: start: 20160822

REACTIONS (3)
  - Gastric ulcer [Recovering/Resolving]
  - Gastrointestinal haemorrhage [Recovering/Resolving]
  - Anaemia [Recovering/Resolving]

NARRATIVE: CASE EVENT DATE: 20161012
